FAERS Safety Report 26155086 (Version 1)
Quarter: 2025Q4

REPORT INFORMATION
  Report Type: Spontaneous
  Country: US (occurrence: US)
  Receive Date: 20251215
  Receipt Date: 20251215
  Transmission Date: 20260118
  Serious: No
  Sender: TOLMAR
  Company Number: US-Tolmar-TLM-2025-09326

PATIENT

DRUGS (2)
  1. ELIGARD [Suspect]
     Active Substance: LEUPROLIDE ACETATE
     Indication: Prostate cancer metastatic
     Dosage: DOSE NOT ADMINISTERED?GTIN: 00362935756804?SN: 7659548195786?LOT NUMBER: 15548CUS EXP 11/2026?SYRING
  2. DEVICE [Suspect]
     Active Substance: DEVICE
     Indication: Prostate cancer metastatic
     Dosage: DOSE NOT ADMINISTERED?GTIN: 00362935756804?SN: 7659548195786?LOT NUMBER: 15548CUS EXP 11/2026?SYRING

REACTIONS (3)
  - Intercepted product preparation error [Unknown]
  - Device leakage [Unknown]
  - Device occlusion [Unknown]
